FAERS Safety Report 9126217 (Version 2)
Quarter: 2013Q3

REPORT INFORMATION
  Report Type: Spontaneous
  Country: CA (occurrence: CA)
  Receive Date: 20130117
  Receipt Date: 20130926
  Transmission Date: 20140515
  Serious: Yes (Hospitalization)
  Sender: FDA-Public Use
  Company Number: CA-ROCHE-1180303

PATIENT
  Age: 64 Year
  Sex: Male

DRUGS (8)
  1. XOLAIR [Suspect]
     Indication: ASTHMA
     Route: 058
     Dates: start: 20121112
  2. XOLAIR [Suspect]
     Route: 058
     Dates: start: 20130923
  3. ADVAIR [Concomitant]
  4. ALVESCO [Concomitant]
  5. SPIRIVA [Concomitant]
  6. NASONEX [Concomitant]
  7. PANTOLOC [Concomitant]
  8. PREDNISONE [Concomitant]

REACTIONS (3)
  - Asthma [Unknown]
  - Influenza [Unknown]
  - Blood pressure systolic increased [Unknown]
